FAERS Safety Report 20597508 (Version 1)
Quarter: 2022Q1

REPORT INFORMATION
  Report Type: Spontaneous
  Country: US (occurrence: None)
  Receive Date: 20220315
  Receipt Date: 20220315
  Transmission Date: 20220423
  Serious: Yes (Disabling)
  Sender: FDA-Public Use
  Company Number: None

PATIENT
  Age: 58 Year
  Sex: Female
  Weight: 108 kg

DRUGS (16)
  1. SPRAVATO [Suspect]
     Active Substance: ESKETAMINE
     Dates: start: 20220111, end: 20220211
  2. PAROXETINE [Concomitant]
     Active Substance: PAROXETINE
  3. VALIUM [Concomitant]
     Active Substance: DIAZEPAM
  4. LEVOTHYROXINE [Concomitant]
     Active Substance: LEVOTHYROXINE
  5. PANTOPRAZOLE [Concomitant]
     Active Substance: PANTOPRAZOLE
  6. ROSUVASTATIN [Concomitant]
     Active Substance: ROSUVASTATIN
  7. GABAPENTIN [Concomitant]
     Active Substance: GABAPENTIN
  8. IBUPROFEN [Concomitant]
     Active Substance: IBUPROFEN
  9. BACLOFEN [Concomitant]
     Active Substance: BACLOFEN
  10. RIZATRIPTAN [Concomitant]
     Active Substance: RIZATRIPTAN
  11. LIDOCAINE [Concomitant]
     Active Substance: LIDOCAINE
  12. NICOTINE [Concomitant]
     Active Substance: NICOTINE
  13. NICOTINE [Concomitant]
     Active Substance: NICOTINE
  14. 50+ women^s multivitamin [Concomitant]
  15. CALCIUM WITH D3 [Concomitant]
  16. BENADRYL [Concomitant]
     Active Substance: DIPHENHYDRAMINE HYDROCHLORIDE

REACTIONS (6)
  - Conversion disorder [None]
  - Sleep deficit [None]
  - Panic attack [None]
  - Headache [None]
  - Vertigo [None]
  - Abnormal dreams [None]

NARRATIVE: CASE EVENT DATE: 20220120
